FAERS Safety Report 6011338-9 (Version None)
Quarter: 2008Q4

REPORT INFORMATION
  Report Type: 
  Country: None (occurrence: None)
  Receive Date: 20081218
  Receipt Date: 20081209
  Transmission Date: 20090506
  Serious: Yes (Other)
  Sender: FDA-Public Use
  Company Number: CH-ROCHE-602518

PATIENT
  Sex: Female

DRUGS (1)
  1. BONIVA [Suspect]
     Indication: OSTEOPOROSIS
     Dosage: DOSE REGIMEN REPORTED AS 3 MG PER TOTAL. FORM REPORTED AS VIAL.
     Route: 042
     Dates: start: 20081106

REACTIONS (4)
  - ARTHRALGIA [None]
  - BLOOD URIC ACID INCREASED [None]
  - INFLUENZA LIKE ILLNESS [None]
  - JOINT EFFUSION [None]
